FAERS Safety Report 11751084 (Version 1)
Quarter: 2015Q4

REPORT INFORMATION
  Report Type: Spontaneous
  Country: US (occurrence: US)
  Receive Date: 20151118
  Receipt Date: 20151118
  Transmission Date: 20160304
  Serious: Yes (Hospitalization, Other)
  Sender: FDA-Public Use
  Company Number: US-ELI_LILLY_AND_COMPANY-US201511001903

PATIENT
  Sex: Male

DRUGS (5)
  1. FLUTICASONE PROPIONATE. [Concomitant]
     Active Substance: FLUTICASONE PROPIONATE
     Dosage: UNK, PRN
     Route: 045
  2. CIALIS [Suspect]
     Active Substance: TADALAFIL
     Indication: POSTOPERATIVE CARE
     Dosage: 5 MG, QD
     Route: 065
  3. CIALIS [Suspect]
     Active Substance: TADALAFIL
     Indication: PROSTATIC OPERATION
     Dosage: 5 MG, PRN
     Route: 065
     Dates: start: 2013
  4. SINGULAIR [Concomitant]
     Active Substance: MONTELUKAST SODIUM
     Dosage: UNK, UNKNOWN
     Route: 065
  5. COMBIVENT [Concomitant]
     Active Substance: ALBUTEROL SULFATE\IPRATROPIUM BROMIDE
     Dosage: UNK, UNKNOWN
     Route: 065

REACTIONS (4)
  - Prostatic specific antigen increased [Unknown]
  - Prostate cancer [Unknown]
  - Gastric disorder [Recovered/Resolved]
  - Dyspepsia [Unknown]
